FAERS Safety Report 7842240-5 (Version None)
Quarter: 2011Q4

REPORT INFORMATION
  Report Type: 
  Country: None (occurrence: None)
  Receive Date: 20111025
  Receipt Date: 20111021
  Transmission Date: 20120403
  Serious: Yes (Death, Hospitalization)
  Sender: FDA-Public Use
  Company Number: TW-SANOFI-AVENTIS-2011SA064411

PATIENT
  Age: 86 Year
  Sex: Male
  Weight: 65.8 kg

DRUGS (4)
  1. CABAZITAXEL [Suspect]
     Route: 042
     Dates: start: 20110919, end: 20110919
  2. CABAZITAXEL [Suspect]
     Indication: PROSTATE CANCER METASTATIC
     Route: 042
     Dates: start: 20110725, end: 20110725
  3. PREDNISOLONE [Suspect]
     Indication: PROSTATE CANCER METASTATIC
     Route: 048
     Dates: start: 20110725, end: 20110930
  4. NEUPOGEN [Concomitant]
     Dates: start: 20110921

REACTIONS (1)
  - SEPTIC SHOCK [None]
